FAERS Safety Report 25709361 (Version 1)
Quarter: 2025Q3

REPORT INFORMATION
  Report Type: Spontaneous
  Country: CN (occurrence: CN)
  Receive Date: 20250821
  Receipt Date: 20250821
  Transmission Date: 20251020
  Serious: Yes (Other)
  Sender: AMGEN
  Company Number: CN-AMGEN-CHNSP2025165596

PATIENT
  Age: 23 Year
  Sex: Female

DRUGS (5)
  1. APREMILAST [Suspect]
     Active Substance: APREMILAST
     Indication: Pustular psoriasis
     Route: 065
  2. ACITRETIN [Concomitant]
     Active Substance: ACITRETIN
     Indication: Pustular psoriasis
  3. CYCLOSPORINE [Concomitant]
     Active Substance: CYCLOSPORINE
     Indication: Pustular psoriasis
  4. IXEKIZUMAB [Concomitant]
     Active Substance: IXEKIZUMAB
     Indication: Pustular psoriasis
  5. ADALIMUMAB [Concomitant]
     Active Substance: ADALIMUMAB
     Indication: Pustular psoriasis

REACTIONS (6)
  - Respiratory tract infection [Unknown]
  - Therapeutic product effect incomplete [Unknown]
  - Erythema [Not Recovered/Not Resolved]
  - Pustule [Recovered/Resolved]
  - Arthralgia [Recovering/Resolving]
  - Pyrexia [Recovering/Resolving]
